FAERS Safety Report 7674407-3 (Version None)
Quarter: 2011Q3

REPORT INFORMATION
  Report Type: 
  Country: None (occurrence: None)
  Receive Date: 20110810
  Receipt Date: 20110802
  Transmission Date: 20111222
  Serious: Yes (Death, Life-Threatening, Other)
  Sender: FDA-Public Use
  Company Number: FR-ELI_LILLY_AND_COMPANY-FR201108000600

PATIENT
  Sex: Male

DRUGS (2)
  1. CISPLATIN [Concomitant]
     Indication: ADENOSQUAMOUS CELL LUNG CANCER
     Dosage: 150 MG, UNKNOWN
     Route: 042
     Dates: start: 20110422, end: 20110422
  2. ALIMTA [Suspect]
     Indication: LUNG ADENOCARCINOMA
     Dosage: 1000 MG, UNKNOWN
     Route: 042
     Dates: start: 20110422, end: 20110422

REACTIONS (2)
  - PHLEBITIS [None]
  - RENAL FAILURE [None]
